FAERS Safety Report 8475600-2 (Version None)
Quarter: 2012Q2

REPORT INFORMATION
  Report Type: 
  Country: None (occurrence: None)
  Receive Date: 20120628
  Receipt Date: 20120621
  Transmission Date: 20120825
  Serious: Yes (Hospitalization, Other)
  Sender: FDA-Public Use
  Company Number: GB-ABBOTT-12P-167-0910298-00

PATIENT
  Sex: Female
  Weight: 64 kg

DRUGS (11)
  1. CALCICHEW D3 FORTE [Concomitant]
     Indication: PRODUCT USED FOR UNKNOWN INDICATION
  2. LANSOPRAZOLE [Concomitant]
     Indication: PRODUCT USED FOR UNKNOWN INDICATION
  3. AZATHIOPRINE [Concomitant]
     Indication: PRODUCT USED FOR UNKNOWN INDICATION
     Dosage: HELD WHILE LFT'S ARE ABNORMAL
  4. OTHER BIOLOGIC [Concomitant]
     Indication: PRODUCT USED FOR UNKNOWN INDICATION
  5. PREDNISOLONE [Concomitant]
     Dosage: DOSE REDUCED BACK ON DISCHARGE
  6. AMOXICILLIN AND CLAVULANATE POTASSIUM [Concomitant]
     Indication: PRODUCT USED FOR UNKNOWN INDICATION
  7. CORTICOSTEROIDS [Concomitant]
     Indication: PRODUCT USED FOR UNKNOWN INDICATION
  8. PREDNISOLONE [Concomitant]
     Indication: PRODUCT USED FOR UNKNOWN INDICATION
  9. PREDNISOLONE [Concomitant]
     Dosage: DOSE INCREASED TO 20MG WHILE AN INPATIENT
  10. HUMIRA [Suspect]
     Indication: RHEUMATOID ARTHRITIS
     Route: 058
     Dates: start: 20040515, end: 20111007
  11. MIRTAZAPINE [Concomitant]
     Indication: PRODUCT USED FOR UNKNOWN INDICATION

REACTIONS (7)
  - COUGH [None]
  - EXERCISE TOLERANCE DECREASED [None]
  - SPUTUM DISCOLOURED [None]
  - DYSPNOEA [None]
  - PNEUMONIA [None]
  - LIVER FUNCTION TEST ABNORMAL [None]
  - CHOLELITHIASIS [None]
